FAERS Safety Report 14161348 (Version 1)
Quarter: 2017Q4

REPORT INFORMATION
  Report Type: Spontaneous
  Country: US (occurrence: US)
  Receive Date: 20171106
  Receipt Date: 20171106
  Transmission Date: 20180321
  Serious: Yes (Other)
  Sender: FDA-Public Use
  Company Number: PHHY2017US160046

PATIENT
  Age: 30 Year
  Sex: Male

DRUGS (4)
  1. SALINE [Concomitant]
     Active Substance: SODIUM CHLORIDE
     Indication: PRODUCT USED FOR UNKNOWN INDICATION
     Dosage: 500 ML, UNK
  2. ACICLOVIR [Suspect]
     Active Substance: ACYCLOVIR
     Dosage: 700 MG, Q8H
     Route: 042
  3. METHYLPREDNISOLONE. [Suspect]
     Active Substance: METHYLPREDNISOLONE
     Indication: SCLERITIS
     Route: 065
  4. ACICLOVIR [Suspect]
     Active Substance: ACYCLOVIR
     Indication: ENDOPHTHALMITIS
     Dosage: 1 G, Q8H
     Route: 042

REACTIONS (4)
  - Acute kidney injury [Unknown]
  - Herpes simplex [Unknown]
  - Drug effect incomplete [Unknown]
  - Product use in unapproved indication [Unknown]
